FAERS Safety Report 4280610-5 (Version None)
Quarter: 2004Q1

REPORT INFORMATION
  Report Type: 
  Country: None (occurrence: None)
  Receive Date: 20040127
  Receipt Date: 20040114
  Transmission Date: 20041129
  Serious: Yes (Other)
  Sender: FDA-Public Use
  Company Number: A0426325A

PATIENT
  Age: 21 Year
  Sex: Female

DRUGS (1)
  1. NICODERM CQ [Suspect]
     Indication: EX-SMOKER
     Dosage: 21 MG/ TRANSDERMAL
     Route: 062
     Dates: start: 20030917, end: 20030917

REACTIONS (7)
  - APPLICATION SITE PRURITUS [None]
  - ASTHENIA [None]
  - BLINDNESS TRANSIENT [None]
  - DIZZINESS [None]
  - FALL [None]
  - LOSS OF CONSCIOUSNESS [None]
  - NAUSEA [None]
